FAERS Safety Report 10302215 (Version 1)
Quarter: 2014Q3

REPORT INFORMATION
  Report Type: Spontaneous
  Country: IT (occurrence: IT)
  Receive Date: 20140714
  Receipt Date: 20140714
  Transmission Date: 20150326
  Serious: Yes (Other)
  Sender: FDA-Public Use
  Company Number: IT-ASTRAZENECA-2014SE48809

PATIENT
  Age: 12120 Day
  Sex: Female

DRUGS (2)
  1. ROPIVACAINE [Suspect]
     Active Substance: ROPIVACAINE
     Indication: ANALGESIC THERAPY
     Route: 008
     Dates: start: 20140404, end: 20140404
  2. SUFENTANIL [Suspect]
     Active Substance: SUFENTANIL
     Indication: ANALGESIC THERAPY
     Route: 008
     Dates: start: 20140404, end: 20140404

REACTIONS (3)
  - Spinal pain [Recovering/Resolving]
  - Headache [Recovering/Resolving]
  - CSF pressure decreased [Recovering/Resolving]

NARRATIVE: CASE EVENT DATE: 20140405
